FAERS Safety Report 15118112 (Version 2)
Quarter: 2018Q3

REPORT INFORMATION
  Report Type: Spontaneous
  Country: JP (occurrence: JP)
  Receive Date: 20180707
  Receipt Date: 20180725
  Transmission Date: 20181010
  Serious: Yes (Hospitalization, Other)
  Sender: FDA-Public Use
  Company Number: JP-UCBSA-2018028781

PATIENT
  Age: 9 Year
  Sex: Female
  Weight: 16 kg

DRUGS (19)
  1. VIMPAT [Suspect]
     Active Substance: LACOSAMIDE
     Indication: EPILEPSY
     Dosage: 8 MG, 2X/DAY (BID)
     Route: 048
     Dates: start: 20180515, end: 2018
  2. E KEPPRA [Concomitant]
     Active Substance: LEVETIRACETAM
     Dosage: 0.2 ML DAILY
     Route: 048
     Dates: start: 20180529, end: 20180604
  3. PENTASA [Concomitant]
     Active Substance: MESALAMINE
     Indication: IMMUNODEFICIENCY
     Dosage: 250 MG, 2X/DAY (BID)
     Route: 048
     Dates: start: 201703
  4. THYRADIN S [Concomitant]
     Active Substance: LEVOTHYROXINE SODIUM
     Indication: IMMUNODEFICIENCY
     Dosage: 10 MG, ONCE DAILY (QD)
     Route: 048
     Dates: start: 201703
  5. PREDNISOLONE. [Concomitant]
     Active Substance: PREDNISOLONE
     Dosage: 2 MG DAILY
     Route: 048
  6. E KEPPRA [Concomitant]
     Active Substance: LEVETIRACETAM
     Indication: PARTIAL SEIZURES
     Dosage: 0.6 ML DAILY
     Route: 048
     Dates: start: 201703
  7. POLYMYXIN B SULFATE. [Concomitant]
     Active Substance: POLYMYXIN B SULFATE
     Indication: IMMUNODEFICIENCY
     Dosage: 1 DF, 2X/DAY (BID)
     Dates: start: 201703
  8. VALACICLOVIR HYDROCHLORIDE [Concomitant]
     Active Substance: VALACYCLOVIR HYDROCHLORIDE
     Indication: IMMUNODEFICIENCY
     Dosage: 0.75 G, 2X/DAY (BID)
     Route: 048
     Dates: start: 201703
  9. VIMPAT [Suspect]
     Active Substance: LACOSAMIDE
     Indication: PARTIAL SEIZURES
     Dosage: 32 MG DAILY
     Route: 048
     Dates: start: 20180522, end: 2018
  10. BAKTAR [Concomitant]
     Active Substance: SULFAMETHOXAZOLE\TRIMETHOPRIM
     Indication: IMMUNODEFICIENCY
     Dosage: UNK
     Route: 048
     Dates: start: 201703
  11. DIFLUCAN [Concomitant]
     Active Substance: FLUCONAZOLE
     Indication: IMMUNODEFICIENCY
     Dosage: UNK
     Route: 048
     Dates: start: 201703
  12. BIO?THREE [Concomitant]
     Active Substance: HERBALS
     Indication: IMMUNODEFICIENCY
     Dosage: 0.75 MG, 2X/DAY (BID)
     Route: 048
     Dates: start: 201703
  13. PREDNISOLONE. [Concomitant]
     Active Substance: PREDNISOLONE
     Indication: PRODUCT USED FOR UNKNOWN INDICATION
     Dosage: 4 MG, ONCE DAILY (QD)
     Route: 048
     Dates: start: 20180508
  14. E KEPPRA [Concomitant]
     Active Substance: LEVETIRACETAM
     Dosage: 0.4 ML DAILY
     Route: 048
     Dates: start: 20180517, end: 201805
  15. URSO [Concomitant]
     Active Substance: URSODIOL
     Indication: IMMUNODEFICIENCY
     Dosage: UNK
     Route: 048
     Dates: start: 201703
  16. CORTRIL [Concomitant]
     Active Substance: HYDROCORTISONE
     Indication: IMMUNODEFICIENCY
     Dosage: 15 MG, ONCE DAILY (QD)
     Route: 048
     Dates: start: 201703
  17. PROGRAF [Concomitant]
     Active Substance: TACROLIMUS\TACROLIMUS ANHYDROUS
     Indication: GRAFT VERSUS HOST DISEASE
     Dosage: 0.5 MG, 2X/DAY (BID)
     Route: 048
  18. VIMPAT [Suspect]
     Active Substance: LACOSAMIDE
     Dosage: 50 MG DAILY
     Route: 048
     Dates: start: 20180612
  19. TOPINA [Concomitant]
     Active Substance: TOPIRAMATE
     Indication: PARTIAL SEIZURES
     Dosage: 57.5 MG, 2X/DAY (BID)
     Route: 048
     Dates: start: 20170220

REACTIONS (2)
  - Neutropenia [Recovered/Resolved]
  - Off label use [Unknown]

NARRATIVE: CASE EVENT DATE: 20180515
